FAERS Safety Report 8572368-6 (Version None)
Quarter: 2012Q3

REPORT INFORMATION
  Report Type: 
  Country: None (occurrence: None)
  Receive Date: 20120806
  Receipt Date: 20120731
  Transmission Date: 20120928
  Serious: Yes (Hospitalization)
  Sender: FDA-Public Use
  Company Number: DE-ROCHE-1071007

PATIENT
  Age: 67 Year
  Sex: Female
  Weight: 65 kg

DRUGS (8)
  1. AVASTIN [Suspect]
     Indication: OVARIAN EPITHELIAL CANCER
     Dosage: LAST DOSE PRIOR TO AE: 16/MAY/2012
     Route: 042
     Dates: start: 20111125, end: 20120627
  2. PACLITAXEL [Suspect]
     Indication: OVARIAN EPITHELIAL CANCER
     Dosage: LAST DOSE PRIOR TO AE:14/MAR/2012
     Route: 042
     Dates: start: 20111125, end: 20120627
  3. CARBOPLATIN [Suspect]
     Indication: OVARIAN EPITHELIAL CANCER
     Dosage: LAST DOSE PRIOR TO AE:14/MAR/2012
     Route: 042
     Dates: start: 20111125, end: 20120627
  4. METOPROLOL TARTRATE [Concomitant]
     Indication: HYPERTENSION
     Dosage: LAST DOSE PRIOR TO AE: 22/JUN/2012
     Route: 048
     Dates: start: 20120520
  5. AMLODIPINE [Concomitant]
     Indication: HYPERTENSION
     Dosage: LAST DOSE PRIOR TO AE: 22/JUN/2012
     Route: 048
     Dates: start: 20120216, end: 20120622
  6. EBRANTIL [Concomitant]
     Indication: HYPERTENSION
     Dosage: LAST DOSE PRIOR TO AE: 22/JUN/2012
     Route: 048
     Dates: start: 20120417
  7. AMIOXID [Concomitant]
     Indication: PAIN
     Dosage: LAST DOSE PRIOR TO AE: 22/JUN/2012, DOSE,30/200 MG
     Route: 048
     Dates: start: 19980101, end: 20120622
  8. CARBAMAZEPINE [Concomitant]
     Indication: PAIN
     Dosage: LAST DOSE PRIOR TO AE: 22/JUN/2012, DOSE,30/200 MG
     Route: 048
     Dates: start: 19980101, end: 20120622

REACTIONS (2)
  - ILEUS [None]
  - HERNIA OBSTRUCTIVE [None]
